FAERS Safety Report 5599639-X (Version None)
Quarter: 2008Q1

REPORT INFORMATION
  Report Type: 
  Country: None (occurrence: None)
  Receive Date: 20080123
  Receipt Date: 20080109
  Transmission Date: 20080703
  Serious: Yes (Hospitalization, Other)
  Sender: FDA-Public Use
  Company Number: JP-BRISTOL-MYERS SQUIBB COMPANY-14009286

PATIENT
  Sex: Male

DRUGS (14)
  1. SINEMET [Suspect]
     Indication: PARKINSON'S DISEASE
     Dosage: AUG05-OCT05,22NOV05-26MAY06:300MG DAILY,186DAYS,03OCT06-CONT:300MG DAILY.
     Route: 048
     Dates: start: 20050801
  2. SYMMETREL [Suspect]
     Indication: PARKINSON'S DISEASE
     Dosage: TAB
     Route: 048
     Dates: start: 20051006, end: 20060221
  3. CARBIDOPA AND LEVODOPA [Suspect]
     Indication: PARKINSON'S DISEASE
     Dosage: 08FEB05-21FEB05:150MG DAILY 14DAYS,22FEB05-JUL05:300MG DAILY,26MAY06-13JUN06:300MG DAILY 19DAYS
     Route: 048
     Dates: start: 20060526, end: 20060613
  4. DROXIDOPA [Suspect]
     Indication: PARKINSON'S DISEASE
     Dosage: CAP
     Route: 048
     Dates: start: 20050322, end: 20050324
  5. CABERGOLINE [Suspect]
     Indication: PARKINSON'S DISEASE
     Dosage: TAB
     Route: 048
     Dates: start: 20050405, end: 20050509
  6. PERMAX [Suspect]
     Indication: PARKINSON'S DISEASE
     Dosage: TAB
     Route: 048
     Dates: start: 20050524, end: 20050621
  7. DOMIN [Suspect]
     Indication: PARKINSON'S DISEASE
     Dosage: FORM = TAB
     Route: 048
     Dates: start: 20050510, end: 20050512
  8. RISPERIDONE [Concomitant]
     Dates: start: 20050524, end: 20050621
  9. TIAPRIDE [Concomitant]
     Dates: start: 20050524, end: 20050711
  10. ZONISAMIDE [Concomitant]
  11. IFENPRODIL TARTRATE [Concomitant]
  12. ISOSORBIDE DINITRATE [Concomitant]
  13. MOSAPRIDE CITRATE [Concomitant]
     Dates: start: 20050208, end: 20050405
  14. QUETIAPINE FUMARATE [Concomitant]
     Dates: start: 20050405, end: 20050524

REACTIONS (6)
  - CONTUSION [None]
  - FALL [None]
  - IMPULSIVE BEHAVIOUR [None]
  - NO THERAPEUTIC RESPONSE [None]
  - PATHOLOGICAL GAMBLING [None]
  - SUBDURAL HAEMATOMA [None]
